FAERS Safety Report 6418895-9 (Version None)
Quarter: 2009Q4

REPORT INFORMATION
  Report Type: 
  Country: None (occurrence: None)
  Receive Date: 20091028
  Receipt Date: 20091028
  Transmission Date: 20100525
  Serious: Yes (Other)
  Sender: FDA-Public Use
  Company Number: None

PATIENT
  Sex: Female
  Weight: 77.1115 kg

DRUGS (2)
  1. BUPROPION HCL [Suspect]
     Indication: DEPRESSION
     Dosage: 300 MG ONCE DAILY PO
     Route: 048
     Dates: start: 20071026, end: 20071101
  2. BUPROPION HCL [Suspect]
     Indication: PAIN
     Dosage: 300 MG ONCE DAILY PO
     Route: 048
     Dates: start: 20071026, end: 20071101

REACTIONS (2)
  - NO THERAPEUTIC RESPONSE [None]
  - WEIGHT INCREASED [None]
